FAERS Safety Report 6422512-1 (Version None)
Quarter: 2009Q4

REPORT INFORMATION
  Report Type: 
  Country: None (occurrence: None)
  Receive Date: 20091102
  Receipt Date: 20091021
  Transmission Date: 20100525
  Serious: Yes (Hospitalization, Other)
  Sender: FDA-Public Use
  Company Number: US-BIOGENIDEC-2008BI014559

PATIENT
  Age: 61 Year
  Sex: Female

DRUGS (2)
  1. TYSABRI [Suspect]
     Indication: MULTIPLE SCLEROSIS
     Route: 042
     Dates: start: 20061128, end: 20080512
  2. TYSABRI [Suspect]
     Route: 042
     Dates: start: 20080618

REACTIONS (20)
  - ABDOMINAL DISCOMFORT [None]
  - ARTHRITIS [None]
  - ARTHROPATHY [None]
  - BRAIN INJURY [None]
  - CONFUSIONAL STATE [None]
  - CONVULSION [None]
  - COORDINATION ABNORMAL [None]
  - EPILEPSY [None]
  - HAEMOGLOBIN DECREASED [None]
  - HAEMORRHAGE [None]
  - HEADACHE [None]
  - HYPERSOMNIA [None]
  - HYPOVENTILATION [None]
  - INFECTION [None]
  - LOSS OF CONSCIOUSNESS [None]
  - MENSTRUAL DISORDER [None]
  - PERIPHERAL COLDNESS [None]
  - SOMNOLENCE [None]
  - ULCER [None]
  - WHITE BLOOD CELL COUNT INCREASED [None]
